FAERS Safety Report 9711170 (Version 1)
Quarter: 2013Q4

REPORT INFORMATION
  Report Type: Spontaneous
  Country: US (occurrence: US)
  Receive Date: 20131126
  Receipt Date: 20131126
  Transmission Date: 20140711
  Serious: No
  Sender: FDA-Public Use
  Company Number: US-BRISTOL-MYERS SQUIBB COMPANY-19183763

PATIENT
  Age: 68 Year
  Sex: Male
  Weight: 106.57 kg

DRUGS (2)
  1. BYETTA PEN DISPOSABLE [Suspect]
     Indication: TYPE 2 DIABETES MELLITUS
     Dosage: STRENGTH:250MCG/ML
  2. LANTUS [Concomitant]
     Dosage: 1DF:70/30 UNIT NOS

REACTIONS (2)
  - Injection site bruising [Unknown]
  - Product quality issue [Unknown]
